FAERS Safety Report 14688410 (Version 2)
Quarter: 2018Q2

REPORT INFORMATION
  Report Type: Spontaneous
  Country: JP (occurrence: JP)
  Receive Date: 20180328
  Receipt Date: 20180524
  Transmission Date: 20180711
  Serious: Yes (Life-Threatening, Disabling)
  Sender: FDA-Public Use
  Company Number: JP-ELI_LILLY_AND_COMPANY-JP201803010539AA

PATIENT
  Age: 1 Year
  Sex: Female
  Weight: 7 kg

DRUGS (16)
  1. HUMULIN R [Suspect]
     Active Substance: INSULIN HUMAN
     Dosage: 10 IU, OTHER
     Route: 041
     Dates: start: 20180316, end: 20180317
  2. PRECEDEX [Concomitant]
     Active Substance: DEXMEDETOMIDINE HYDROCHLORIDE
     Dosage: UNK
     Route: 042
     Dates: end: 20180317
  3. HANP [Concomitant]
     Active Substance: CARPERITIDE
     Dosage: UNK
     Dates: start: 20180312, end: 20180313
  4. CALCICOL [Concomitant]
     Active Substance: CALCIUM GLUCONATE
     Dosage: UNK
     Dates: start: 20180314, end: 20180317
  5. CEFMETAZOLE [Concomitant]
     Active Substance: CEFMETAZOLE
     Dosage: UNK
     Dates: end: 20180318
  6. FUROSEMIDE. [Concomitant]
     Active Substance: FUROSEMIDE
     Dosage: UNK
     Dates: start: 20180313, end: 20180318
  7. HUMULIN R [Suspect]
     Active Substance: INSULIN HUMAN
     Indication: HYPERKALAEMIA
     Dosage: 10 IU, WITH GLUCOSE 25 % 200 ML (10 ML/HR)
     Route: 041
     Dates: start: 20180315, end: 20180316
  8. MIDAZOLAM [Concomitant]
     Active Substance: MIDAZOLAM HYDROCHLORIDE
     Dosage: UNK
     Route: 042
     Dates: start: 20180314, end: 20180318
  9. FAMOTIDINE. [Concomitant]
     Active Substance: FAMOTIDINE
     Dosage: UNK
     Route: 042
     Dates: start: 20180315, end: 20180318
  10. BOSMIN                             /00003901/ [Concomitant]
     Active Substance: EPINEPHRINE
     Dosage: UNK
     Dates: end: 20180317
  11. HUMULIN R [Suspect]
     Active Substance: INSULIN HUMAN
     Dosage: 10 IU, OTHER
     Dates: start: 20180317, end: 20180317
  12. FULCALIQ [Concomitant]
     Active Substance: AMINO ACIDS\CARBOHYDRATES\ELECTROLYTES NOS\VITAMINS
     Dosage: UNK
     Route: 041
     Dates: start: 20180313, end: 20180315
  13. HUMULIN R [Suspect]
     Active Substance: INSULIN HUMAN
     Dosage: UNK UNK, OTHER
     Route: 041
     Dates: start: 20180317, end: 20180318
  14. GLUCOSE [Concomitant]
     Active Substance: DEXTROSE
     Dosage: 200 ML, WITH HUMAN INSULIN 10IU
     Route: 041
     Dates: start: 20180315, end: 20180318
  15. SOLDEM [Concomitant]
     Active Substance: DEXTROSE\POTASSIUM CHLORIDE\SODIUM CHLORIDE\SODIUM LACTATE
     Route: 041
  16. KAKODIN [Concomitant]
     Dosage: UNK
     Dates: start: 20180317

REACTIONS (3)
  - Off label use [Unknown]
  - Hypoglycaemia [Recovered/Resolved with Sequelae]
  - Incorrect dose administered [Unknown]

NARRATIVE: CASE EVENT DATE: 20180315
